FAERS Safety Report 5045887-7 (Version None)
Quarter: 2006Q3

REPORT INFORMATION
  Report Type: 
  Country: None (occurrence: None)
  Receive Date: 20060710
  Receipt Date: 20060630
  Transmission Date: 20061208
  Serious: Yes (Death)
  Sender: FDA-Public Use
  Company Number: US-AVENTIS-200615640US

PATIENT
  Age: 19 Year
  Sex: Male

DRUGS (1)
  1. KETEK [Suspect]
     Indication: PNEUMONIA
     Dosage: DOSE: UNK
     Dates: start: 20060301

REACTIONS (1)
  - HEPATIC FAILURE [None]
